FAERS Safety Report 4880489-4 (Version None)
Quarter: 2006Q1

REPORT INFORMATION
  Report Type: 
  Country: None (occurrence: None)
  Receive Date: 20060113
  Receipt Date: 20060106
  Transmission Date: 20060701
  Serious: Yes (Hospitalization, Other)
  Sender: FDA-Public Use
  Company Number: US-MERCK-0601USA01018

PATIENT
  Age: 64 Year
  Sex: Male
  Weight: 85 kg

DRUGS (2)
  1. VIOXX [Suspect]
     Indication: ARTHRITIS
     Route: 048
     Dates: start: 20031101, end: 20040501
  2. VIOXX [Suspect]
     Indication: SHOULDER PAIN
     Route: 048
     Dates: start: 20031101, end: 20040501

REACTIONS (3)
  - CARDIAC DISORDER [None]
  - CEREBROVASCULAR ACCIDENT [None]
  - MYOCARDIAL INFARCTION [None]
